FAERS Safety Report 12383436 (Version 3)
Quarter: 2016Q3

REPORT INFORMATION
  Report Type: Other
  Country: IT (occurrence: IT)
  Receive Date: 20160518
  Receipt Date: 20160708
  Transmission Date: 20161109
  Serious: Yes (Life-Threatening)
  Sender: FDA-Public Use
  Company Number: IT-SEATTLE GENETICS-2016SGN00783

PATIENT

DRUGS (1)
  1. ADCETRIS [Suspect]
     Active Substance: BRENTUXIMAB VEDOTIN
     Indication: HODGKIN^S DISEASE
     Dosage: 117 MG, MONTHLY
     Route: 042
     Dates: start: 20151203, end: 20160120

REACTIONS (1)
  - Epidermolysis bullosa [Recovered/Resolved]

NARRATIVE: CASE EVENT DATE: 20160120
